FAERS Safety Report 7896940-1 (Version None)
Quarter: 2011Q4

REPORT INFORMATION
  Report Type: 
  Country: None (occurrence: None)
  Receive Date: 20111104
  Receipt Date: 20111104
  Transmission Date: 20120403
  Serious: No
  Sender: FDA-Public Use
  Company Number: None

PATIENT
  Age: 70 Year
  Sex: Female
  Weight: 84.369 kg

DRUGS (2)
  1. PRADAXA [Suspect]
     Indication: ATRIAL FIBRILLATION
     Dosage: 150MG CAP BID PO (ORALLY)
     Route: 048
     Dates: start: 20110828, end: 20110912
  2. PRADAXA [Suspect]
     Indication: ANTICOAGULANT THERAPY
     Dosage: 150MG CAP BID PO (ORALLY)
     Route: 048
     Dates: start: 20110828, end: 20110912

REACTIONS (4)
  - RASH [None]
  - PRURITUS [None]
  - INSOMNIA [None]
  - URTICARIA [None]
